APPROVED DRUG PRODUCT: METHADONE HYDROCHLORIDE
Active Ingredient: METHADONE HYDROCHLORIDE
Strength: 10MG
Dosage Form/Route: TABLET;ORAL
Application: A090635 | Product #001 | TE Code: AA
Applicant: THEPHARMANETWORK LLC
Approved: Nov 25, 2009 | RLD: No | RS: No | Type: RX